FAERS Safety Report 9038120 (Version 1)
Quarter: 2013Q1

REPORT INFORMATION
  Report Type: Spontaneous
  Country: US (occurrence: US)
  Receive Date: 20130129
  Receipt Date: 20130129
  Transmission Date: 20140127
  Serious: No
  Sender: FDA-Public Use
  Company Number: US-GLAXOSMITHKLINE-A0957387A

PATIENT
  Age: 58 Year
  Sex: Female
  Weight: 59.1 kg

DRUGS (6)
  1. WELLBUTRIN [Suspect]
     Indication: SMOKING CESSATION THERAPY
     Route: 048
  2. VALIUM [Concomitant]
     Indication: MUSCLE SPASMS
     Dosage: 5MG THREE TIMES PER DAY
     Route: 048
  3. PERCOCET [Concomitant]
     Indication: NEURALGIA
     Route: 048
  4. DILAUDID [Concomitant]
     Indication: NEURALGIA
     Dosage: 2MG THREE TIMES PER DAY
     Route: 048
  5. GABAPENTIN [Concomitant]
     Indication: NEURALGIA
     Dosage: 300MG TWICE PER DAY
  6. IBUPROFEN [Concomitant]
     Indication: NEURALGIA
     Dosage: 800MG THREE TIMES PER DAY
     Dates: end: 2011

REACTIONS (1)
  - Urticaria [Unknown]
